FAERS Safety Report 15559803 (Version 11)
Quarter: 2022Q4

REPORT INFORMATION
  Report Type: Other
  Country: GB (occurrence: GB)
  Receive Date: 20181029
  Receipt Date: 20221116
  Transmission Date: 20230113
  Serious: Yes (Death, Life-Threatening, Hospitalization, Disabling, Other)
  Sender: FDA-Public Use
  Company Number: None

PATIENT
  Age: 76 Year
  Sex: Male
  Weight: 69 kg

DRUGS (123)
  1. HYDROCORTISONE [Suspect]
     Active Substance: HYDROCORTISONE
     Indication: Product used for unknown indication
     Dosage: UNK
     Route: 065
  2. HYDROCORTISONE [Suspect]
     Active Substance: HYDROCORTISONE
     Dosage: 50 MILLIGRAM, TID
     Route: 042
  3. HYDROCORTISONE [Suspect]
     Active Substance: HYDROCORTISONE
     Dosage: 50 MILLIGRAM, TID/ PER DAY
     Route: 042
  4. HYDROCORTISONE [Suspect]
     Active Substance: HYDROCORTISONE
     Dosage: 50 MILLIGRAM, TID, INJECTION (STARTED ON 01-FEB-2018)
     Route: 042
  5. HYDROCORTISONE [Suspect]
     Active Substance: HYDROCORTISONE
     Dosage: 150 MILLIGRAM, QD, INJECTION (STARTED ON 01-FEB-2018)
     Route: 042
  6. HYDROCORTISONE [Suspect]
     Active Substance: HYDROCORTISONE
     Dosage: 150 MILLIGRAM, TID , INJECTION(STARTED ON 01-FEB-2018)
     Route: 042
  7. ALFACALCIDOL [Suspect]
     Active Substance: ALFACALCIDOL
     Indication: Product used for unknown indication
     Dosage: UNK
     Route: 065
  8. ALFACALCIDOL [Suspect]
     Active Substance: ALFACALCIDOL
     Dosage: 500 NANOGRAM, EVERY MORNING (QD)
     Route: 048
  9. ALFACALCIDOL [Suspect]
     Active Substance: ALFACALCIDOL
     Dosage: 500 NANOGRAM, QD,PER DAY
     Route: 048
  10. ALFACALCIDOL [Suspect]
     Active Substance: ALFACALCIDOL
     Dosage: 500 NANOGRAM, QD,PER DAY
     Route: 048
  11. DOXYCYCLINE [Suspect]
     Active Substance: DOXYCYCLINE
     Indication: Lower respiratory tract infection
     Dosage: UNK
     Route: 065
  12. DOXYCYCLINE [Suspect]
     Active Substance: DOXYCYCLINE
     Dosage: UNK
     Route: 065
  13. DOXYCYCLINE [Suspect]
     Active Substance: DOXYCYCLINE
     Dosage: UNK
     Route: 065
  14. DOXYCYCLINE [Suspect]
     Active Substance: DOXYCYCLINE
     Dosage: 1 DOSAGE FORM, UNKNOWN
     Route: 065
  15. DOXYCYCLINE [Suspect]
     Active Substance: DOXYCYCLINE
     Dosage: 1 DOSAGE FORM, PRN
     Route: 065
  16. OMEPRAZOLE [Suspect]
     Active Substance: OMEPRAZOLE
     Indication: Duodenal ulcer
     Dosage: UNK
     Route: 065
  17. OMEPRAZOLE [Suspect]
     Active Substance: OMEPRAZOLE
     Dosage: 20 MILLIGRAM, QD, OMEPRAZOLE CHEMO IBERICA 20 MG DAILY, EVERY MORNING, GASTRO-RESISTANT CAPSULE, HAR
     Route: 048
  18. OMEPRAZOLE [Suspect]
     Active Substance: OMEPRAZOLE
     Dosage: 20 MILLIGRAM, EVERY MONTH, GASTRO-RESISTANT CAPSULE, HARD
     Route: 048
  19. OMEPRAZOLE [Suspect]
     Active Substance: OMEPRAZOLE
     Dosage: 20 MILLIGRAM, MONTHLY,PRN (START DATE 27/01/2018)
     Route: 048
  20. OMEPRAZOLE [Suspect]
     Active Substance: OMEPRAZOLE
     Dosage: 20 MILLIGRAM, PER DAY, OMEPRAZOLE CHEMO IBERICA 20 MG DAILY
     Route: 048
  21. PREDNISOLONE [Suspect]
     Active Substance: PREDNISOLONE
     Indication: Product used for unknown indication
     Dosage: 5 MILLIGRAM, QD (AM)
     Route: 048
  22. PREDNISOLONE [Suspect]
     Active Substance: PREDNISOLONE
     Dosage: 10 MILLIGRAM (STARTED ON 27-JAN-2018)(INCREASE DOSE TO 10 MG FOR 5 DAYS)
     Route: 065
  23. PREDNISOLONE [Suspect]
     Active Substance: PREDNISOLONE
     Dosage: 5 MILLIGRAM, MONTHLY,  INCREASE PREDNISOLONE TO 10 MG FOR 5 DAYS (STARTED ON 27-JAN-2018)
     Route: 048
  24. PREDNISOLONE [Suspect]
     Active Substance: PREDNISOLONE
     Dosage: 10 MILLIGRAM(INCREASE DOSE TO 10 MG FOR 5 DAYS)
     Route: 065
  25. PREDNISOLONE [Suspect]
     Active Substance: PREDNISOLONE
     Dosage: 5 MILLIGRAM, QD
     Route: 048
  26. PREDNISOLONE [Suspect]
     Active Substance: PREDNISOLONE
     Dosage: 5 MILLIGRAM, MONTH, MORNING,START 27-JAN-2018
     Route: 048
  27. CLARITHROMYCIN [Suspect]
     Active Substance: CLARITHROMYCIN
     Indication: Pneumonia
     Dosage: 500 MILLIGRAM, QOD, INJECTION
     Route: 042
  28. CLARITHROMYCIN [Suspect]
     Active Substance: CLARITHROMYCIN
     Indication: Mediastinitis
     Dosage: 500 MILLIGRAM, BID, (STARTED ON 27-JAN-2018)
     Route: 042
     Dates: end: 20180131
  29. CLARITHROMYCIN [Suspect]
     Active Substance: CLARITHROMYCIN
     Indication: Lower respiratory tract infection
     Dosage: UNK
     Route: 065
  30. CLARITHROMYCIN [Suspect]
     Active Substance: CLARITHROMYCIN
     Dosage: 500 MILLIGRAM, BID
     Route: 042
  31. CLARITHROMYCIN [Suspect]
     Active Substance: CLARITHROMYCIN
     Dosage: 1000 MILLIGRAM, QD (STARTED ON 27-JAN-2018)
     Route: 042
     Dates: end: 20180131
  32. CLARITHROMYCIN [Suspect]
     Active Substance: CLARITHROMYCIN
     Dosage: UNK
     Route: 065
  33. CLARITHROMYCIN [Suspect]
     Active Substance: CLARITHROMYCIN
     Dosage: 500 MILLIGRAM, BID
     Route: 042
  34. CLARITHROMYCIN [Suspect]
     Active Substance: CLARITHROMYCIN
     Dosage: UNK,INJECTION
     Route: 065
  35. CLARITHROMYCIN [Suspect]
     Active Substance: CLARITHROMYCIN
     Dosage: 9000 MILLIGRAM, INJECTION
     Route: 065
  36. CEFUROXIME [Suspect]
     Active Substance: CEFUROXIME
     Indication: Product used for unknown indication
     Dosage: UNK, (STARTED ON 31-JAN-2018)
     Route: 065
  37. CEFUROXIME [Suspect]
     Active Substance: CEFUROXIME
     Dosage: UNK,PRN,(START DATE: 31 JAN 2018)
     Route: 065
  38. CEFUROXIME [Suspect]
     Active Substance: CEFUROXIME
     Dosage: UNK, PRN
     Route: 065
  39. BISOPROLOL [Suspect]
     Active Substance: BISOPROLOL
     Indication: Product used for unknown indication
     Dosage: UNK
     Route: 065
  40. BISOPROLOL [Suspect]
     Active Substance: BISOPROLOL
     Dosage: UNK
     Route: 065
  41. BISOPROLOL [Suspect]
     Active Substance: BISOPROLOL
     Dosage: UNK, PRN
     Route: 065
  42. DEXTROSE [Suspect]
     Active Substance: DEXTROSE
     Indication: Product used for unknown indication
     Dosage: UNK, PRN,(STARTED ON 30-JAN-2018)
     Route: 065
  43. DEXTROSE [Suspect]
     Active Substance: DEXTROSE
     Dosage: UNK
     Route: 065
  44. DEXTROSE [Suspect]
     Active Substance: DEXTROSE
     Dosage: UNK, PRN
     Route: 065
  45. DEXTROSE [Suspect]
     Active Substance: DEXTROSE
     Dosage: UNK, PRN
     Route: 065
  46. DEXTROSE [Suspect]
     Active Substance: DEXTROSE
     Dosage: UNK, PRN
     Route: 065
  47. NITROGLYCERIN [Suspect]
     Active Substance: NITROGLYCERIN
     Indication: Product used for unknown indication
     Dosage: UNK
     Route: 065
  48. NITROGLYCERIN [Suspect]
     Active Substance: NITROGLYCERIN
     Dosage: UNK, PRN
     Route: 065
  49. NITROGLYCERIN [Suspect]
     Active Substance: NITROGLYCERIN
     Dosage: UNK, PRN,GTN SPRAY
     Route: 065
  50. TACROLIMUS [Interacting]
     Active Substance: TACROLIMUS
     Indication: Renal transplant
     Dosage: 1.5 MILLIGRAM, BID, (STARTED ON 27-JAN-2018)
     Route: 048
     Dates: end: 20180130
  51. TACROLIMUS [Interacting]
     Active Substance: TACROLIMUS
     Indication: Prophylaxis against transplant rejection
     Dosage: 2 MILLIGRAM, BID, (STARTED ON 28-JAN-2018)
     Route: 048
  52. TACROLIMUS [Interacting]
     Active Substance: TACROLIMUS
     Dosage: 4 MILLIGRAM, QD, (STARTED ON 28-JAN-2018)
     Route: 048
  53. TACROLIMUS [Interacting]
     Active Substance: TACROLIMUS
     Dosage: 2 MILLIGRAM, BID, (STARTED ON 28-JAN-2018)
     Route: 048
  54. TACROLIMUS [Interacting]
     Active Substance: TACROLIMUS
     Dosage: 1.5 MILLIGRAM, BID, (STARTED ON 27-JAN-2018)
     Route: 048
     Dates: end: 20180130
  55. TACROLIMUS [Interacting]
     Active Substance: TACROLIMUS
     Dosage: 1.5 MILLIGRAM, BID (27 JAN 2018)
     Route: 048
  56. TACROLIMUS [Interacting]
     Active Substance: TACROLIMUS
     Dosage: 2 MILLIGRAM, BID (CAPSULE)
     Route: 048
  57. TACROLIMUS [Interacting]
     Active Substance: TACROLIMUS
     Dosage: 2 MILLIGRAM, BID, (STARTED ON 28-JAN-2018)
     Route: 048
  58. TACROLIMUS [Interacting]
     Active Substance: TACROLIMUS
     Dosage: 15 MILLIGRAM, BID (27 JAN 2018)
     Route: 048
  59. TACROLIMUS [Interacting]
     Active Substance: TACROLIMUS
     Dosage: 3 MILLIGRAM,QD, DAILY, PER DAY, (STARTED ON 27-JAN-2018)
     Route: 065
  60. TACROLIMUS [Interacting]
     Active Substance: TACROLIMUS
     Dosage: 15 MILLIGRAM, BID
     Route: 048
  61. TACROLIMUS [Interacting]
     Active Substance: TACROLIMUS
     Dosage: 30 MILLIGRAM,QD, DAILY, PER DAY
     Route: 065
  62. TACROLIMUS [Interacting]
     Active Substance: TACROLIMUS
     Dosage: 15 MILLIGRAM, BID,CAPSULE, HARD
     Route: 048
  63. TACROLIMUS [Interacting]
     Active Substance: TACROLIMUS
     Dosage: 1.5 MILLIGRAM, QD,CAPSULE, HARD
     Route: 048
  64. TACROLIMUS [Interacting]
     Active Substance: TACROLIMUS
     Dosage: UNK, PRN
     Route: 065
  65. SENNA [Suspect]
     Active Substance: SENNA LEAF\SENNOSIDES\SENNOSIDES A AND B
     Indication: Product used for unknown indication
     Dosage: UNK
     Route: 048
  66. SENNA [Suspect]
     Active Substance: SENNA LEAF\SENNOSIDES\SENNOSIDES A AND B
     Dosage: 15 MILLIGRAM, AT BED TIME
     Route: 048
  67. SENNA [Suspect]
     Active Substance: SENNA LEAF\SENNOSIDES\SENNOSIDES A AND B
     Dosage: 15 MILLIGRAM, PRN
     Route: 048
  68. SENNA [Suspect]
     Active Substance: SENNA LEAF\SENNOSIDES\SENNOSIDES A AND B
     Dosage: UNK
     Route: 065
  69. SENNA [Suspect]
     Active Substance: SENNA LEAF\SENNOSIDES\SENNOSIDES A AND B
     Dosage: 15 MILLIGRAM, QD,PER DAY(SENNA 15MG ON PO O/A)
     Route: 048
  70. SENNA [Suspect]
     Active Substance: SENNA LEAF\SENNOSIDES\SENNOSIDES A AND B
     Dosage: 15 MILLIGRAM, QD,PER DAY
     Route: 048
  71. SENNA [Suspect]
     Active Substance: SENNA LEAF\SENNOSIDES\SENNOSIDES A AND B
     Dosage: UNK, PRN
     Route: 065
  72. ENVARSUS XR [Suspect]
     Active Substance: TACROLIMUS
     Indication: Renal transplant
     Dosage: 1.5 MILLIGRAM BID (3 MILLIGRAM, QD) (STARTED ON 27-JAN-2018)
     Route: 048
     Dates: end: 20180131
  73. ENVARSUS XR [Suspect]
     Active Substance: TACROLIMUS
     Indication: Prophylaxis against transplant rejection
     Dosage: UNK
     Route: 065
  74. ENVARSUS XR [Suspect]
     Active Substance: TACROLIMUS
     Dosage: 27 MILLIGRAM, TABLET
     Route: 065
  75. ENVARSUS XR [Suspect]
     Active Substance: TACROLIMUS
     Dosage: 27 MILLIGRAM, Q5D TABLET
     Route: 065
  76. ENVARSUS XR [Suspect]
     Active Substance: TACROLIMUS
     Dosage: 1.5 MILLIGRAM BID (3 MILLIGRAM, QD) (STARTED ON 27-JAN-2018)
     Route: 048
     Dates: end: 20180131
  77. ENVARSUS XR [Suspect]
     Active Substance: TACROLIMUS
     Dosage: 12 MILLIGRAM, UNKNOWN
     Route: 065
  78. ENVARSUS XR [Suspect]
     Active Substance: TACROLIMUS
     Dosage: 15 MILLIGRAM, BID, 30 MILLIGRAM, QD (15 MG, BID)
     Route: 048
  79. ENVARSUS XR [Suspect]
     Active Substance: TACROLIMUS
     Dosage: 1.5 MILLIGRAM, BID (3MG PER DAY), CAPSULE
     Route: 065
     Dates: start: 20100127, end: 20180130
  80. ENVARSUS XR [Suspect]
     Active Substance: TACROLIMUS
     Dosage: 1.5 MILLIGRAM, BID (3MG PER DAY), CAPSULE
     Route: 065
     Dates: start: 20100127, end: 20180130
  81. ENVARSUS XR [Suspect]
     Active Substance: TACROLIMUS
     Dosage: 15 MILLIGRAM, BID, 30 MILLIGRAM PER DAY, CAPSULE
     Route: 048
  82. ENVARSUS XR [Suspect]
     Active Substance: TACROLIMUS
     Dosage: 2 MILLIGRAM, QDTACROLIMUS 2 MG TWICE DAILY), CAPSULE
     Route: 048
  83. ENVARSUS XR [Suspect]
     Active Substance: TACROLIMUS
     Dosage: 4 MILLIGRAM, QD, CAPSULE(START DATE:28-JAN-2018)
     Route: 048
  84. ENVARSUS XR [Suspect]
     Active Substance: TACROLIMUS
     Dosage: 2 MILLIGRAM, BID, CAPSULE (START DATE:28-JAN-2018)
     Route: 048
  85. ENVARSUS XR [Suspect]
     Active Substance: TACROLIMUS
     Dosage: 4 MILLIGRAM, QD, CAPSULE(START DATE:28-JAN-2018)
     Route: 048
  86. ENVARSUS XR [Suspect]
     Active Substance: TACROLIMUS
     Dosage: 4 MILLIGRAM, QD, CAPSULE
     Route: 048
  87. ENVARSUS XR [Suspect]
     Active Substance: TACROLIMUS
     Dosage: 15 MILLIGRAM, BID, 30 MILLIGRAM PER DAY, CAPSULE(START DATE: 27-JAN-2018)
     Route: 048
  88. ENVARSUS XR [Suspect]
     Active Substance: TACROLIMUS
     Dosage: 1.5 MILLIGRAM, QD, CAPSULE, (START DATE:27-JAN-2018)
     Route: 048
  89. EPLERENONE [Concomitant]
     Active Substance: EPLERENONE
     Indication: Product used for unknown indication
     Dosage: 25 MILLIGRAM, QD,EVERY MORNING (30 JAN 2018)
     Route: 048
  90. EPLERENONE [Concomitant]
     Active Substance: EPLERENONE
     Dosage: 25 MILLIGRAM, MONTHLY (STOP DATE 30/1/2018)
     Route: 048
  91. EPLERENONE [Concomitant]
     Active Substance: EPLERENONE
     Dosage: 25 MILLIGRAM, QD,EVERY MORNING
     Route: 048
     Dates: end: 20180130
  92. EPLERENONE [Concomitant]
     Active Substance: EPLERENONE
     Dosage: 25 MILLIGRAM/PER DAY
     Route: 048
  93. FUROSEMIDE [Concomitant]
     Active Substance: FUROSEMIDE
     Indication: Product used for unknown indication
     Dosage: 40 MILLIGRAM, EVERY MORNING
     Route: 048
  94. FUROSEMIDE [Concomitant]
     Active Substance: FUROSEMIDE
     Dosage: 80 MILLIGRAM, EVERY MORNING
     Route: 048
  95. FUROSEMIDE [Concomitant]
     Active Substance: FUROSEMIDE
     Dosage: 80 MILLIGRAM, QD, (STOPPED ON 30-JAN-2018)
     Route: 048
  96. FUROSEMIDE [Concomitant]
     Active Substance: FUROSEMIDE
     Dosage: 40 MILLIGRAM, QD (AT 12 PM)
     Route: 048
  97. FUROSEMIDE [Concomitant]
     Active Substance: FUROSEMIDE
     Dosage: 120 MILLIGRAM PER DAY (80MG MORNING, 40MG 12PM)
     Route: 048
  98. FUROSEMIDE [Concomitant]
     Active Substance: FUROSEMIDE
     Dosage: 80 MILLIGRAM, QD
     Route: 048
  99. FUROSEMIDE [Concomitant]
     Active Substance: FUROSEMIDE
     Dosage: 80 MILLIGRAM, QD, MONTHLY (STOP DATE: 30/1/2018)
     Route: 048
  100. GLICLAZIDE [Concomitant]
     Active Substance: GLICLAZIDE
     Indication: Product used for unknown indication
     Dosage: 40 MILLIGRAM, EVERY MORNING
     Route: 048
  101. GLICLAZIDE [Concomitant]
     Active Substance: GLICLAZIDE
     Dosage: 40 MILLIGRAM, MONTHLY
     Route: 048
  102. GLICLAZIDE [Concomitant]
     Active Substance: GLICLAZIDE
     Dosage: 40 MILLIGRAM, EVERY MORNING
     Route: 048
  103. GLICLAZIDE [Concomitant]
     Active Substance: GLICLAZIDE
     Dosage: 40 MILLIGRAM, QD
     Route: 048
  104. GLICLAZIDE [Concomitant]
     Active Substance: GLICLAZIDE
     Dosage: 40 MILLIGRAM, QD,DAILY;GLICLAZIDE 40MG OM PO O/A, MONTHLY
     Route: 048
  105. CALCIUM CARBONATE\CHOLECALCIFEROL [Concomitant]
     Active Substance: CALCIUM CARBONATE\CHOLECALCIFEROL
     Indication: Product used for unknown indication
     Dosage: 20 NANOGRAM DAILY
     Route: 048
  106. CALCIUM CARBONATE\CHOLECALCIFEROL [Concomitant]
     Active Substance: CALCIUM CARBONATE\CHOLECALCIFEROL
     Dosage: UNK
     Route: 048
  107. BETAHISTINE [Concomitant]
     Active Substance: BETAHISTINE
     Indication: Product used for unknown indication
     Dosage: 8 MILLIGRAM, EVERY MORNING
     Route: 048
  108. BETAHISTINE [Concomitant]
     Active Substance: BETAHISTINE
     Dosage: 8 MILLIGRAM, MONTHLY
     Route: 048
  109. BETAHISTINE [Concomitant]
     Active Substance: BETAHISTINE
     Dosage: 8 MILLIGRAM/PER DAY,BETAHISTINE 8MG OM PO
     Route: 048
  110. BETAHISTINE [Concomitant]
     Active Substance: BETAHISTINE
     Dosage: 8 MILLIGRAM, ONCE A MONTH
     Route: 048
  111. ALBUTEROL [Concomitant]
     Active Substance: ALBUTEROL
     Indication: Product used for unknown indication
     Dosage: UNK
     Route: 065
  112. ALBUTEROL [Concomitant]
     Active Substance: ALBUTEROL
     Dosage: UNK
     Route: 065
  113. ALLOPURINOL SODIUM [Concomitant]
     Active Substance: ALLOPURINOL SODIUM
     Indication: Product used for unknown indication
     Dosage: 100 MILLIGRAM, QD
     Route: 048
  114. ALLOPURINOL SODIUM [Concomitant]
     Active Substance: ALLOPURINOL SODIUM
     Dosage: 100 MILLIGRAM, DAILY,QD,ALLOPURINOL 100MG OD PO O/A
     Route: 048
  115. GLUCAGON [Concomitant]
     Active Substance: GLUCAGON
     Indication: Product used for unknown indication
     Dosage: UNK (30 JAN 2018)
     Route: 030
  116. GLUCAGON [Concomitant]
     Active Substance: GLUCAGON
     Dosage: UNK,PRN, INJECTION,START 30-JAN-2018
     Route: 030
  117. GLUCAGON [Concomitant]
     Active Substance: GLUCAGON
     Dosage: UNK
     Route: 030
  118. GLUCOGEL [Concomitant]
     Indication: Product used for unknown indication
     Dosage: UNK
     Route: 065
  119. GLUCOGEL [Concomitant]
     Dosage: UNK, STARTED ON 30 JAN 2018
     Route: 065
  120. CHOLECALCIFEROL [Concomitant]
     Active Substance: CHOLECALCIFEROL
     Indication: Product used for unknown indication
     Dosage: 20 NANOGRAM, MONTHLY
     Route: 048
  121. CHOLECALCIFEROL [Concomitant]
     Active Substance: CHOLECALCIFEROL
     Dosage: 20 NANOGRAM, EVERY MORNING
     Route: 048
  122. CHOLECALCIFEROL [Concomitant]
     Active Substance: CHOLECALCIFEROL
     Dosage: 20 NANOGRAM, QD
     Route: 048
  123. CHOLECALCIFEROL [Concomitant]
     Active Substance: CHOLECALCIFEROL
     Dosage: 20 NANOGRAM,CALCIUM CARBONATE + COLECALCIFEROL 20NG DAILY
     Route: 048

REACTIONS (29)
  - Oesophageal carcinoma [Fatal]
  - Myocardial ischaemia [Fatal]
  - Pneumonia [Fatal]
  - Acute kidney injury [Fatal]
  - Renal impairment [Fatal]
  - Cardiac failure congestive [Fatal]
  - Swelling [Fatal]
  - Dyspnoea [Fatal]
  - Oesophageal perforation [Fatal]
  - Multimorbidity [Fatal]
  - Sepsis [Fatal]
  - Rales [Fatal]
  - Inflammatory marker increased [Fatal]
  - Ascites [Fatal]
  - Lung consolidation [Fatal]
  - Haemoptysis [Fatal]
  - Soft tissue mass [Fatal]
  - Productive cough [Fatal]
  - Superinfection [Fatal]
  - Pleural effusion [Fatal]
  - Lower respiratory tract infection [Fatal]
  - Cardiomegaly [Fatal]
  - Rash [Fatal]
  - Dysphagia [Fatal]
  - Pyrexia [Fatal]
  - Hypoglycaemia [Fatal]
  - Cough [Fatal]
  - Malaise [Fatal]
  - Condition aggravated [Fatal]

NARRATIVE: CASE EVENT DATE: 20180118
